FAERS Safety Report 7236685-4 (Version None)
Quarter: 2011Q1

REPORT INFORMATION
  Report Type: 
  Country: None (occurrence: None)
  Receive Date: 20110110
  Receipt Date: 20101217
  Transmission Date: 20110831
  Serious: Yes (Other)
  Sender: FDA-Public Use
  Company Number: LEO-2010-01119

PATIENT

DRUGS (1)
  1. INNOHEP [Suspect]
     Indication: LUNG NEOPLASM MALIGNANT
     Dosage: SUBCUTANEOUS
     Route: 058

REACTIONS (1)
  - PULMONARY EMBOLISM [None]
